FAERS Safety Report 9131047 (Version 1)
Quarter: 2013Q1

REPORT INFORMATION
  Report Type: Spontaneous
  Country: US (occurrence: US)
  Receive Date: 20130301
  Receipt Date: 20130301
  Transmission Date: 20140127
  Serious: Yes (Other)
  Sender: FDA-Public Use
  Company Number: US-BRISTOL-MYERS SQUIBB COMPANY-17407255

PATIENT
  Age: 60 Year
  Sex: Female
  Weight: 67.12 kg

DRUGS (3)
  1. ABATACEPT SUBQ INJECTION 125MG/ML [Suspect]
     Indication: RHEUMATOID ARTHRITIS
     Dosage: 1DF= 125MG/ML?ALSO TAKEN AS CONMED?INTERR 1DEC12, RESTART 31JAN13
     Route: 058
     Dates: start: 20121128
  2. SYNTHROID [Concomitant]
  3. VITAMIN C [Concomitant]

REACTIONS (1)
  - Cataract [Recovered/Resolved]
